FAERS Safety Report 7277121-1 (Version None)
Quarter: 2011Q1

REPORT INFORMATION
  Report Type: 
  Country: None (occurrence: None)
  Receive Date: 20110202
  Receipt Date: 20110202
  Transmission Date: 20110831
  Serious: Yes (Other)
  Sender: FDA-Public Use
  Company Number: None

PATIENT
  Sex: Female
  Weight: 61.2356 kg

DRUGS (1)
  1. MACROBID [Suspect]
     Indication: CYSTITIS
     Dosage: 100MG 1-2 X DAY
     Dates: start: 20101220, end: 20101224

REACTIONS (9)
  - CHEST PAIN [None]
  - MALAISE [None]
  - COUGH [None]
  - HEADACHE [None]
  - CHILLS [None]
  - ARTHRALGIA [None]
  - CHEST DISCOMFORT [None]
  - FATIGUE [None]
  - ASTHENIA [None]
